FAERS Safety Report 11595366 (Version 5)
Quarter: 2018Q2

REPORT INFORMATION
  Report Type: Report from Study
  Country: CA (occurrence: CA)
  Receive Date: 20151006
  Receipt Date: 20180623
  Transmission Date: 20180711
  Serious: Yes (Hospitalization, Other)
  Sender: FDA-Public Use
  Company Number: CA-ROCHE-1141403

PATIENT
  Age: 54 Year
  Sex: Female
  Weight: 101 kg

DRUGS (4)
  1. ACTEMRA [Suspect]
     Active Substance: TOCILIZUMAB
     Indication: RHEUMATOID ARTHRITIS
     Route: 042
     Dates: start: 20120926
  2. ACTEMRA [Suspect]
     Active Substance: TOCILIZUMAB
     Dosage: 800 MG NEW DOSE ADDED.
     Route: 042
     Dates: start: 20120223
  3. CORTISONE [Suspect]
     Active Substance: CORTISONE\HYDROCORTISONE
     Indication: RHEUMATOID ARTHRITIS
     Route: 065
     Dates: start: 20130628
  4. SYNTHROID [Concomitant]
     Active Substance: LEVOTHYROXINE SODIUM

REACTIONS (14)
  - Migraine [Recovered/Resolved]
  - Fall [Unknown]
  - Nasopharyngitis [Unknown]
  - Malaise [Unknown]
  - Weight decreased [Not Recovered/Not Resolved]
  - Arthralgia [Not Recovered/Not Resolved]
  - Hypoaesthesia [Unknown]
  - Upper limb fracture [Unknown]
  - Influenza [Not Recovered/Not Resolved]
  - Chest discomfort [Unknown]
  - Nausea [Not Recovered/Not Resolved]
  - Weight increased [Unknown]
  - Rheumatoid arthritis [Unknown]
  - Malaise [Not Recovered/Not Resolved]

NARRATIVE: CASE EVENT DATE: 201209
